FAERS Safety Report 7042490-4 (Version None)
Quarter: 2010Q4

REPORT INFORMATION
  Report Type: 
  Country: None (occurrence: None)
  Receive Date: 20101013
  Receipt Date: 20091106
  Transmission Date: 20110411
  Serious: No
  Sender: FDA-Public Use
  Company Number: US-ASTRAZENECA-2009SE21274

PATIENT
  Age: 72 Year
  Sex: Female
  Weight: 81.6 kg

DRUGS (6)
  1. SYMBICORT [Suspect]
     Indication: ASTHMA
     Dosage: 80/4.5 2 PUFFS TWICE
     Route: 055
     Dates: start: 20081201, end: 20090101
  2. SYMBICORT [Suspect]
     Indication: PLEURISY
     Dosage: 80/4.5 2 PUFFS TWICE
     Route: 055
     Dates: start: 20081201, end: 20090101
  3. SYMBICORT [Suspect]
     Dosage: 80/4.5 1 PUFFS TWICE
     Route: 055
     Dates: start: 20090101
  4. SYMBICORT [Suspect]
     Dosage: 80/4.5 1 PUFFS TWICE
     Route: 055
     Dates: start: 20090101
  5. FLUTICASONE PROPIONATE [Concomitant]
  6. LEVOTHYROXINE [Concomitant]

REACTIONS (10)
  - ASTHMA [None]
  - BLOOD PRESSURE INCREASED [None]
  - COUGH [None]
  - DIZZINESS [None]
  - DRUG DOSE OMISSION [None]
  - FALL [None]
  - FEELING HOT [None]
  - FLUSHING [None]
  - PULMONARY CONGESTION [None]
  - WHEEZING [None]
